FAERS Safety Report 4524053-5 (Version None)
Quarter: 2004Q4

REPORT INFORMATION
  Report Type: 
  Country: None (occurrence: None)
  Receive Date: 20041209
  Receipt Date: 20041125
  Transmission Date: 20050328
  Serious: Yes (Life-Threatening)
  Sender: FDA-Public Use
  Company Number: 2004-FF-00687FF

PATIENT
  Age: 40 Year
  Sex: Male

DRUGS (7)
  1. VIRAMUNE [Suspect]
     Indication: HIV INFECTION
     Dosage: 400 MG (200MG), PO
     Route: 048
     Dates: start: 19981012, end: 20030130
  2. NORVIR [Concomitant]
  3. EPIVIR [Concomitant]
  4. AGENERASE [Concomitant]
  5. DIDANOSINE [Concomitant]
     Indication: HIV INFECTION
  6. STAVUDINE [Concomitant]
     Indication: HIV INFECTION
  7. ............... [Concomitant]

REACTIONS (6)
  - COAGULATION FACTOR DECREASED [None]
  - HAEMOGLOBIN DECREASED [None]
  - HEPATIC FIBROSIS [None]
  - NODULAR REGENERATIVE HYPERPLASIA [None]
  - OESOPHAGEAL VARICES HAEMORRHAGE [None]
  - PORTAL HYPERTENSION [None]
